FAERS Safety Report 9191184 (Version 1)
Quarter: 2013Q1

REPORT INFORMATION
  Report Type: Spontaneous
  Country: US (occurrence: US)
  Receive Date: 20130326
  Receipt Date: 20130326
  Transmission Date: 20140127
  Serious: No
  Sender: FDA-Public Use
  Company Number: US-TEVA-393784USA

PATIENT
  Sex: Female
  Weight: 62.65 kg

DRUGS (5)
  1. AZILECT [Suspect]
     Indication: PARKINSON^S DISEASE
     Dosage: 50/100MG
     Route: 048
  2. MIRAPEX [Concomitant]
     Dosage: 0.5MG QID
     Route: 048
  3. AMILORIDE/HCTZ [Concomitant]
     Dosage: 5/50MG
     Route: 048
  4. HYDROXYUREA [Concomitant]
     Dosage: 500MG-1000MG
     Route: 048
  5. SINEMET [Concomitant]
     Dosage: 50/100MG; QID
     Route: 048

REACTIONS (1)
  - Limb discomfort [Unknown]
